FAERS Safety Report 15732268 (Version 1)
Quarter: 2018Q4

REPORT INFORMATION
  Report Type: Spontaneous
  Country: FR (occurrence: FR)
  Receive Date: 20181217
  Receipt Date: 20181217
  Transmission Date: 20190205
  Serious: Yes (Hospitalization, Other)
  Sender: FDA-Public Use
  Company Number: FR-MYLANLABS-2018M1093750

PATIENT
  Age: 45 Year
  Sex: Male
  Weight: 56 kg

DRUGS (1)
  1. ATENOLOL. [Suspect]
     Active Substance: ATENOLOL
     Indication: PRODUCT USED FOR UNKNOWN INDICATION
     Dosage: 3000 MILLIGRAM
     Route: 048
     Dates: start: 20180523, end: 20180523

REACTIONS (5)
  - Aggression [Recovered/Resolved]
  - Agitation [Recovered/Resolved]
  - Hypothermia [Recovered/Resolved]
  - Poisoning deliberate [Unknown]
  - Heart rate decreased [Recovered/Resolved]

NARRATIVE: CASE EVENT DATE: 20180523
